FAERS Safety Report 7117245-2 (Version None)
Quarter: 2010Q4

REPORT INFORMATION
  Report Type: 
  Country: None (occurrence: None)
  Receive Date: 20101112
  Receipt Date: 20101027
  Transmission Date: 20110411
  Serious: Yes (Other)
  Sender: FDA-Public Use
  Company Number: DSM-2010-01606

PATIENT
  Age: 77 Year
  Sex: Male

DRUGS (10)
  1. PLAUNAC (OLMESARTAN MEDOXOMIL) (TABLET) (OLMESARTAN MEDOXOMIL) [Suspect]
     Indication: HYPERTENSION
     Dosage: 20 MG,ORAL
     Route: 048
     Dates: start: 20051021, end: 20101021
  2. CARVEDILOLO (CARVEDILOL) (CARVEDILOL) [Concomitant]
  3. CITALOPRAM 1A FARMA (CITALOPRAM) (CITALOPRAM) [Concomitant]
  4. LASIX [Concomitant]
  5. NITRODUR II (GLYCERYL TRINITRATE) (GLYCERYL TRINITRATE) [Concomitant]
  6. SINTROM (ACENOCOUMAROL) (ACENOCOUMAROL) [Concomitant]
  7. MADOPAR (LEVODOPA, BENSERAZIDE) (LEVODOPA, BENSERAZIDE) [Concomitant]
  8. ARICEPT [Concomitant]
  9. RIVOTRIL (CLONAZEPAM) (CLONAZEPAM) [Concomitant]
  10. CARDIOASPIRIN (ACETYLSALICYLIC ACID) (ACETYLSALICYLIC ACID) [Concomitant]

REACTIONS (4)
  - DROOLING [None]
  - HYPOTENSION [None]
  - LOSS OF CONSCIOUSNESS [None]
  - PALLOR [None]
